FAERS Safety Report 4738015-6 (Version None)
Quarter: 2005Q3

REPORT INFORMATION
  Report Type: 
  Country: None (occurrence: None)
  Receive Date: 20050803
  Receipt Date: 20050728
  Transmission Date: 20060218
  Serious: Yes (Hospitalization)
  Sender: FDA-Public Use
  Company Number: 200512227GDS

PATIENT
  Age: 88 Year
  Sex: Male

DRUGS (2)
  1. ASPIRIN [Suspect]
     Indication: THROMBOSIS PROPHYLAXIS
     Dosage: 100 MG, ORAL
     Route: 048
     Dates: start: 20040301, end: 20040801
  2. CARBIDOPA AND LEVODOPA [Concomitant]

REACTIONS (19)
  - ARTERIOSCLEROSIS [None]
  - BLOOD PRESSURE INCREASED [None]
  - BODY TEMPERATURE DECREASED [None]
  - CEREBRAL HAEMORRHAGE [None]
  - CEREBRAL INFARCTION [None]
  - CEREBROVASCULAR ACCIDENT [None]
  - DYSKINESIA [None]
  - EPILEPSY [None]
  - HEMIPLEGIA [None]
  - LACUNAR INFARCTION [None]
  - LOSS OF CONSCIOUSNESS [None]
  - MUSCLE RIGIDITY [None]
  - MUSCLE TWITCHING [None]
  - MYOCLONUS [None]
  - PARKINSONISM [None]
  - PSEUDOBULBAR PALSY [None]
  - SEPSIS [None]
  - STATUS EPILEPTICUS [None]
  - URINARY TRACT INFECTION [None]
